FAERS Safety Report 6439683-3 (Version None)
Quarter: 2009Q4

REPORT INFORMATION
  Report Type: 
  Country: None (occurrence: None)
  Receive Date: 20091113
  Receipt Date: 20091103
  Transmission Date: 20100525
  Serious: Yes (Other)
  Sender: FDA-Public Use
  Company Number: AU-PFIZER INC-2009291349

PATIENT
  Sex: Female

DRUGS (1)
  1. ZELDOX [Suspect]
     Dosage: 80 MG, 2X/DAY

REACTIONS (4)
  - BALANCE DISORDER [None]
  - COORDINATION ABNORMAL [None]
  - MUSCLE TIGHTNESS [None]
  - NAUSEA [None]
